FAERS Safety Report 13870238 (Version 1)
Quarter: 2017Q3

REPORT INFORMATION
  Report Type: Spontaneous
  Country: US (occurrence: US)
  Receive Date: 20170815
  Receipt Date: 20170815
  Transmission Date: 20171127
  Serious: Yes (Hospitalization, Other)
  Sender: FDA-Public Use
  Company Number: US-TEVA-796965USA

PATIENT
  Age: 50 Year
  Sex: Female

DRUGS (1)
  1. GABAPENTIN. [Suspect]
     Active Substance: GABAPENTIN
     Indication: PAIN
     Dosage: 1950 MILLIGRAM DAILY;
     Route: 065
     Dates: start: 2002

REACTIONS (14)
  - Pain in jaw [Not Recovered/Not Resolved]
  - Pain in extremity [Unknown]
  - Fatigue [Unknown]
  - Diabetes mellitus [Not Recovered/Not Resolved]
  - Ameloblastoma [Unknown]
  - Oral infection [Not Recovered/Not Resolved]
  - Spinal fracture [Unknown]
  - Pulmonary hypertension [Unknown]
  - Sepsis [Unknown]
  - Localised infection [Unknown]
  - Mass [Unknown]
  - Allergy to metals [Unknown]
  - Swelling [Not Recovered/Not Resolved]
  - Arthritis [Unknown]

NARRATIVE: CASE EVENT DATE: 200211
